FAERS Safety Report 8258269-1 (Version None)
Quarter: 2012Q2

REPORT INFORMATION
  Report Type: 
  Country: None (occurrence: None)
  Receive Date: 20120404
  Receipt Date: 20120326
  Transmission Date: 20120825
  Serious: No
  Sender: FDA-Public Use
  Company Number: US-B.I. PHARMACEUTICALS,INC./RIDGEFIELD-2011-BP-06843BP

PATIENT
  Sex: Female

DRUGS (21)
  1. CITALOPRAM HYDROBROMIDE [Concomitant]
     Indication: DEPRESSION
     Dosage: 40 MG
     Route: 048
  2. METAMUCIL-2 [Concomitant]
     Indication: BOWEL MOVEMENT IRREGULARITY
     Route: 048
     Dates: start: 19800101
  3. OMEPRAZOLE [Concomitant]
     Dosage: 40 MG
  4. MULTI-VITAMINS [Concomitant]
     Indication: SUPPLEMENTATION THERAPY
     Route: 048
     Dates: start: 20070101
  5. VERAPAMIL [Concomitant]
     Indication: ATRIAL FIBRILLATION
     Dosage: 360 MG
     Route: 048
  6. CITALOPRAM HYDROBROMIDE [Concomitant]
     Dosage: 20 MG
     Route: 048
     Dates: start: 20100101
  7. GINKO BILOBA [Concomitant]
     Indication: PROPHYLAXIS
     Route: 048
  8. CLARITIN [Concomitant]
     Indication: PROPHYLAXIS
     Dosage: 10 MG
     Route: 048
  9. PRADAXA [Suspect]
     Indication: ATRIAL FIBRILLATION
     Dosage: 300 MG
     Route: 048
     Dates: start: 20110228
  10. ASCORBIC ACID [Concomitant]
     Indication: PROPHYLAXIS
     Dosage: 1000 MG
     Route: 048
  11. SOY SUPPLEMENT [Concomitant]
     Indication: PROPHYLAXIS
     Route: 048
  12. DOCUSATE SODIUM [Concomitant]
     Indication: FAECES HARD
     Dosage: 200 MG
     Route: 048
     Dates: start: 20070101
  13. CO Q10 [Concomitant]
     Indication: PROPHYLAXIS
     Route: 048
     Dates: start: 20020101
  14. HYDROCHLOROTHIAZIDE [Concomitant]
     Indication: DIURETIC THERAPY
     Dosage: 25 MG
     Route: 048
  15. FUROSEMIDE [Concomitant]
     Dosage: 40 MG
     Route: 048
     Dates: start: 20110301
  16. POTASSIUM CHLORIDE [Concomitant]
     Indication: SUPPLEMENTATION THERAPY
     Dosage: 20 MEQ
     Route: 048
     Dates: start: 20120201
  17. FISH OIL [Concomitant]
     Indication: PROPHYLAXIS
     Dosage: 1000 MG
     Route: 048
  18. FISH OIL [Concomitant]
     Dosage: 2000 MG
     Route: 048
     Dates: start: 20020101
  19. CLARITIN [Concomitant]
     Indication: HYPERSENSITIVITY
  20. CHILDRENS CHEWABLE VITAMINS [Concomitant]
     Indication: ROUTINE HEALTH MAINTENANCE
     Route: 048
  21. DILTIAZEM HCL [Concomitant]
     Indication: ATRIAL FIBRILLATION
     Dosage: 240 MG
     Route: 048
     Dates: start: 20090101

REACTIONS (5)
  - NAUSEA [None]
  - OROPHARYNGEAL PAIN [None]
  - DYSPEPSIA [None]
  - INCORRECT DOSE ADMINISTERED [None]
  - ABDOMINAL DISCOMFORT [None]
